FAERS Safety Report 16048200 (Version 2)
Quarter: 2019Q2

REPORT INFORMATION
  Report Type: Spontaneous
  Country: US (occurrence: US)
  Receive Date: 20190307
  Receipt Date: 20190530
  Transmission Date: 20190711
  Serious: No
  Sender: FDA-Public Use
  Company Number: US-GLAXOSMITHKLINE-US2019AMR036537

PATIENT
  Sex: Male
  Weight: 70 kg

DRUGS (2)
  1. NUCALA [Suspect]
     Active Substance: MEPOLIZUMAB
     Dosage: 300 MG, CYC
     Route: 042
     Dates: start: 20180510, end: 20190304
  2. NUCALA [Suspect]
     Active Substance: MEPOLIZUMAB
     Indication: PRODUCT USED FOR UNKNOWN INDICATION
     Dosage: 100 MG, CYC
     Route: 042
     Dates: start: 2017, end: 20180510

REACTIONS (3)
  - Condition aggravated [Unknown]
  - Forced expiratory volume decreased [Unknown]
  - Fractional exhaled nitric oxide increased [Unknown]
